FAERS Safety Report 18284768 (Version 1)
Quarter: 2020Q3

REPORT INFORMATION
  Report Type: Spontaneous
  Country: FR (occurrence: FR)
  Receive Date: 20200919
  Receipt Date: 20200919
  Transmission Date: 20201103
  Serious: Yes (Other)
  Sender: FDA-Public Use
  Company Number: FR-AUROBINDO-AUR-APL-2020-048296

PATIENT
  Age: 57 Year
  Sex: Male
  Weight: 57 kg

DRUGS (2)
  1. LAROXYL [Suspect]
     Active Substance: AMITRIPTYLINE HYDROCHLORIDE
     Indication: NEURALGIA
     Dosage: 28 GTT DROPS, ONCE A DAY
     Route: 048
     Dates: start: 2019
  2. GABAPENTIN. [Suspect]
     Active Substance: GABAPENTIN
     Indication: NEURALGIA
     Dosage: 1500 MILLIGRAM, ONCE A DAY
     Route: 048

REACTIONS (1)
  - Erectile dysfunction [Not Recovered/Not Resolved]

NARRATIVE: CASE EVENT DATE: 201912
